FAERS Safety Report 8743452 (Version 2)
Quarter: 2012Q4

REPORT INFORMATION
  Report Type: 
  Country: US (occurrence: US)
  Receive Date: 20120824
  Receipt Date: 20120924
  Transmission Date: 20130627
  Serious: Yes (Other)
  Sender: FDA-Public Use
  Company Number: US-BRISTOL-MYERS SQUIBB COMPANY-16865743

PATIENT
  Sex: Male

DRUGS (1)
  1. YERVOY [Suspect]
     Indication: METASTATIC MALIGNANT MELANOMA
     Dates: start: 201201, end: 201204

REACTIONS (5)
  - Malignant neoplasm progression [Unknown]
  - Protein urine present [Unknown]
  - Hypoalbuminaemia [Unknown]
  - Inappropriate antidiuretic hormone secretion [Unknown]
  - Intussusception [Unknown]
